FAERS Safety Report 7138613-9 (Version None)
Quarter: 2010Q4

REPORT INFORMATION
  Report Type: 
  Country: None (occurrence: None)
  Receive Date: 20101206
  Receipt Date: 20101125
  Transmission Date: 20110411
  Serious: Yes (Other)
  Sender: FDA-Public Use
  Company Number: NO-JNJFOC-20101200430

PATIENT
  Sex: Male

DRUGS (7)
  1. REMICADE [Suspect]
     Indication: PSORIATIC ARTHROPATHY
     Route: 042
  2. REMICADE [Suspect]
     Route: 042
  3. REMICADE [Suspect]
     Route: 042
  4. REMICADE [Suspect]
     Route: 042
  5. CETIRIZINE [Concomitant]
     Indication: PREMEDICATION
  6. PARACETAMOL [Concomitant]
     Indication: PREMEDICATION
  7. SOLU-MEDROL [Concomitant]
     Indication: PREMEDICATION

REACTIONS (5)
  - COLD SWEAT [None]
  - INFUSION RELATED REACTION [None]
  - PRESYNCOPE [None]
  - PRURITUS [None]
  - THROAT TIGHTNESS [None]
